FAERS Safety Report 4975075-1 (Version None)
Quarter: 2006Q2

REPORT INFORMATION
  Report Type: 
  Country: None (occurrence: None)
  Receive Date: 20060411
  Receipt Date: 20060327
  Transmission Date: 20061013
  Serious: Yes (Hospitalization, Other)
  Sender: FDA-Public Use
  Company Number: 2006-00500

PATIENT
  Age: 54 Year
  Sex: Female

DRUGS (8)
  1. VELCADE [Suspect]
     Indication: BREAST CANCER
     Dosage: 2.10 MG, 2/WEEK, INTRAVENOUS
     Route: 042
     Dates: start: 20060213, end: 20060223
  2. CAPECITABINE (CAPECITABINE) [Suspect]
     Indication: BREAST CANCER
     Dosage: 4000.00 MG, QD, ORAL
     Route: 048
     Dates: end: 20060226
  3. SPIRONOLACTONE [Concomitant]
  4. LEVOTHYROXINE SODIUM [Concomitant]
  5. PANTOZOL (PANTOPRAZOLE SODIUM) [Concomitant]
  6. MCP (METOCLOPRAMIDE HYDROCHLORIDE) [Concomitant]
  7. FORTECORTIN [Concomitant]
  8. ZOMETA [Concomitant]

REACTIONS (6)
  - BLOOD SODIUM DECREASED [None]
  - DEHYDRATION [None]
  - DIARRHOEA [None]
  - HYPOCALCAEMIA [None]
  - HYPOKALAEMIA [None]
  - VOMITING [None]
